FAERS Safety Report 4981084-9 (Version None)
Quarter: 2006Q1

REPORT INFORMATION
  Report Type: 
  Country: None (occurrence: None)
  Receive Date: 20060227
  Receipt Date: 20050307
  Transmission Date: 20060701
  Serious: Yes (Other)
  Sender: FDA-Public Use
  Company Number: WAES 0503USA00910

PATIENT
  Age: 57 Year
  Sex: Female

DRUGS (5)
  1. ZOCOR [Suspect]
     Indication: BLOOD CHOLESTEROL INCREASED
     Dosage: 40 MG/DAILY/PO
     Route: 048
     Dates: start: 20041116, end: 20050126
  2. FOSAMAX [Concomitant]
  3. NORVASC [Concomitant]
  4. VASOTEC [Concomitant]
  5. [THERAPY UNSPECIFIED] [Concomitant]

REACTIONS (1)
  - RHABDOMYOLYSIS [None]
